FAERS Safety Report 7706698-4 (Version None)
Quarter: 2011Q3

REPORT INFORMATION
  Report Type: 
  Country: None (occurrence: None)
  Receive Date: 20110824
  Receipt Date: 20110819
  Transmission Date: 20111222
  Serious: Yes (Other)
  Sender: FDA-Public Use
  Company Number: GB-PFIZER INC-2011166548

PATIENT
  Age: 34 Year
  Sex: Female
  Weight: 51 kg

DRUGS (1)
  1. VARENICLINE TARTRATE [Suspect]
     Indication: SMOKING CESSATION THERAPY
     Dosage: 1 MG, 2X/DAY
     Route: 048
     Dates: start: 20110329, end: 20110501

REACTIONS (4)
  - DIARRHOEA HAEMORRHAGIC [None]
  - ABDOMINAL PAIN UPPER [None]
  - CONSTIPATION [None]
  - ABDOMINAL DISTENSION [None]
